FAERS Safety Report 13102297 (Version 2)
Quarter: 2017Q1

REPORT INFORMATION
  Report Type: Spontaneous
  Country: US (occurrence: US)
  Receive Date: 20170110
  Receipt Date: 20170302
  Transmission Date: 20170428
  Serious: No
  Sender: FDA-Public Use
  Company Number: US-PFIZER INC-2017007581

PATIENT
  Age: 47 Year
  Sex: Female

DRUGS (3)
  1. IBRANCE [Suspect]
     Active Substance: PALBOCICLIB
     Indication: BREAST CANCER METASTATIC
     Dosage: 125 MG, CYCLIC, (1 CAPSULE BY MOUTH EVERY DAY FOR 3 WEEKS, THEN 1 WEEK OFF-TAKE CON FOOD)
     Route: 048
     Dates: start: 201607
  2. IBRANCE [Suspect]
     Active Substance: PALBOCICLIB
     Dosage: 125 MG, CYCLIC, (DAILY, 21 DAYS ON, 7 DAYS OFF)
     Route: 048
  3. LETROZOLE. [Concomitant]
     Active Substance: LETROZOLE
     Indication: BREAST CANCER METASTATIC
     Dosage: 1 DF, DAILY
     Route: 048

REACTIONS (5)
  - Neck pain [Unknown]
  - Hypoaesthesia [Unknown]
  - Malaise [Unknown]
  - Nausea [Unknown]
  - Neoplasm progression [Recovered/Resolved]

NARRATIVE: CASE EVENT DATE: 201612
